FAERS Safety Report 18404992 (Version 1)
Quarter: 2020Q4

REPORT INFORMATION
  Report Type: Other
  Country: CA (occurrence: CA)
  Receive Date: 20201020
  Receipt Date: 20201020
  Transmission Date: 20210114
  Serious: Yes (Death, Other)
  Sender: FDA-Public Use
  Company Number: CA-APOTEX-2020AP019870

PATIENT
  Age: 49 Year
  Sex: Female

DRUGS (5)
  1. FLUOROURACIL. [Interacting]
     Active Substance: FLUOROURACIL
     Indication: PRODUCT USED FOR UNKNOWN INDICATION
     Dosage: CYCLICAL
     Route: 065
  2. CYCLOPHOSPHAMIDE. [Interacting]
     Active Substance: CYCLOPHOSPHAMIDE
     Indication: BREAST CANCER STAGE II
     Dosage: CYCLICAL
     Route: 065
  3. PIPERACILLIN. [Interacting]
     Active Substance: PIPERACILLIN SODIUM
     Indication: PRODUCT USED FOR UNKNOWN INDICATION
     Dosage: UNK
     Route: 065
  4. TOBRAMYCIN. [Suspect]
     Active Substance: TOBRAMYCIN
     Indication: PRODUCT USED FOR UNKNOWN INDICATION
     Dosage: UNK
     Route: 065
  5. CLINDAMYCIN. [Interacting]
     Active Substance: CLINDAMYCIN
     Indication: WOUND INFECTION
     Dosage: UNK
     Route: 048

REACTIONS (2)
  - Drug interaction [Fatal]
  - Pseudomembranous colitis [Fatal]
